FAERS Safety Report 4913573-7 (Version None)
Quarter: 2006Q1

REPORT INFORMATION
  Report Type: 
  Country: None (occurrence: None)
  Receive Date: 20060210
  Receipt Date: 20060124
  Transmission Date: 20060701
  Serious: Yes (Hospitalization)
  Sender: FDA-Public Use
  Company Number: S06-ESP-00413-01

PATIENT
  Age: 82 Year
  Sex: Male

DRUGS (4)
  1. CIPRALEX (ESCITALOPRAM) [Suspect]
     Dosage: 10 MG QD PO
     Route: 048
     Dates: end: 20051216
  2. SEROQUEL [Concomitant]
  3. PLANTABEN (ISPAGHULA HUSK) [Concomitant]
  4. PLAVIX [Concomitant]

REACTIONS (3)
  - ANXIETY [None]
  - HYPONATRAEMIA [None]
  - NERVOUSNESS [None]
